FAERS Safety Report 6012788-7 (Version None)
Quarter: 2008Q4

REPORT INFORMATION
  Report Type: 
  Country: None (occurrence: None)
  Receive Date: 20081219
  Receipt Date: 20081215
  Transmission Date: 20090506
  Serious: Yes (Hospitalization)
  Sender: FDA-Public Use
  Company Number: GB-TEVA-179077ISR

PATIENT

DRUGS (1)
  1. RAMIPRIL [Suspect]
     Route: 048

REACTIONS (1)
  - HYPERTENSION [None]
